FAERS Safety Report 7061440-8 (Version None)
Quarter: 2010Q4

REPORT INFORMATION
  Report Type: 
  Country: None (occurrence: None)
  Receive Date: 20101026
  Receipt Date: 20101018
  Transmission Date: 20110411
  Serious: Yes (Death, Hospitalization, Disabling, Other)
  Sender: FDA-Public Use
  Company Number: JP-BAYER-201014818BYL

PATIENT
  Age: 73 Year
  Sex: Male

DRUGS (2)
  1. NEXAVAR [Suspect]
     Indication: RENAL CELL CARCINOMA
     Dosage: TOTAL DAILY DOSE: 800 MG  UNIT DOSE: 200 MG
     Route: 048
     Dates: start: 20100910, end: 20100923
  2. SUMIFERON [Concomitant]
     Dosage: TOTAL DAILY DOSE: 3 MIU
     Route: 042

REACTIONS (7)
  - CEREBRAL INFARCTION [None]
  - DYSPHONIA [None]
  - ERYTHEMA MULTIFORME [None]
  - HEPATIC FUNCTION ABNORMAL [None]
  - ILEUS PARALYTIC [None]
  - PLATELET COUNT DECREASED [None]
  - SEPSIS [None]
